FAERS Safety Report 9652963 (Version 1)
Quarter: 2013Q4

REPORT INFORMATION
  Report Type: Spontaneous
  Country: US (occurrence: US)
  Receive Date: 20131029
  Receipt Date: 20131029
  Transmission Date: 20140711
  Serious: No
  Sender: FDA-Public Use
  Company Number: US-BIOGENIDEC-2013BI077732

PATIENT
  Age: 45 Year
  Sex: 0

DRUGS (2)
  1. TECFIDERA [Suspect]
     Indication: MULTIPLE SCLEROSIS
     Route: 002
     Dates: start: 20130705, end: 20130802
  2. AVONEX [Concomitant]
     Route: 030

REACTIONS (5)
  - Adverse event [Unknown]
  - Diarrhoea [Recovered/Resolved]
  - Abdominal pain upper [Recovered/Resolved with Sequelae]
  - Abdominal pain [Recovered/Resolved]
  - Vomiting [Recovered/Resolved]
